FAERS Safety Report 23315570 (Version 1)
Quarter: 2023Q4

REPORT INFORMATION
  Report Type: Spontaneous
  Country: US (occurrence: None)
  Receive Date: 20231218
  Receipt Date: 20231218
  Transmission Date: 20240110
  Serious: Yes (Hospitalization)
  Sender: FDA-Public Use
  Company Number: None

PATIENT
  Sex: Female

DRUGS (22)
  1. XOLAIR [Suspect]
     Active Substance: OMALIZUMAB
     Indication: Asthma
     Dosage: FREQUENCY : MONTHLY;?
     Route: 058
     Dates: start: 20230329
  2. ADVAIR DISKU AER [Concomitant]
  3. ACETAMINOPHEN\CODEINE PHOSPHATE [Concomitant]
     Active Substance: ACETAMINOPHEN\CODEINE PHOSPHATE
  4. AVELOX [Concomitant]
     Active Substance: MOXIFLOXACIN HYDROCHLORIDE
  5. AZITHROMYCIN [Concomitant]
     Active Substance: AZITHROMYCIN
  6. CYCLOBENZAPRINE [Concomitant]
     Active Substance: CYCLOBENZAPRINE
  7. DIAZEPAM [Concomitant]
     Active Substance: DIAZEPAM
  8. EPIPEN 2-PK [Concomitant]
  9. FLECTOR DIS [Concomitant]
  10. ACETAMINOPHEN\HYDROCODONE [Concomitant]
     Active Substance: ACETAMINOPHEN\HYDROCODONE
  11. INDOMETHACIN [Concomitant]
     Active Substance: INDOMETHACIN
  12. KETOROLAC [Concomitant]
     Active Substance: KETOROLAC TROMETHAMINE
  13. LEVAQUIN [Concomitant]
     Active Substance: LEVOFLOXACIN
  14. METHYLPR ACE [Concomitant]
  15. MOMETASONE CRE [Concomitant]
  16. MUPIROCIN OIN [Concomitant]
  17. ONDANSETRON [Concomitant]
  18. PULMICORT SUS [Concomitant]
  19. SULFAMETHOXAZOLE\TRIMETHOPRIM [Concomitant]
     Active Substance: SULFAMETHOXAZOLE\TRIMETHOPRIM
  20. TRAMADOL HCL [Concomitant]
     Active Substance: TRAMADOL HYDROCHLORIDE
  21. VERAMYST SPR [Concomitant]
  22. XOPENEX HFA AER [Concomitant]

REACTIONS (2)
  - Pneumonia [None]
  - Asthma [None]
